FAERS Safety Report 5286306-5 (Version None)
Quarter: 2007Q2

REPORT INFORMATION
  Report Type: 
  Country: None (occurrence: None)
  Receive Date: 20070404
  Receipt Date: 20070329
  Transmission Date: 20071010
  Serious: Yes (Hospitalization, Disabling)
  Sender: FDA-Public Use
  Company Number: DE-MERCK-0702DEU00012

PATIENT
  Age: 44 Year
  Sex: Female
  Weight: 68 kg

DRUGS (6)
  1. EMEND [Suspect]
     Indication: PROPHYLAXIS OF NAUSEA AND VOMITING
     Route: 048
     Dates: start: 20060501, end: 20060501
  2. EMEND [Suspect]
     Route: 048
     Dates: start: 20060501, end: 20060501
  3. NEORECORMAN [Suspect]
     Indication: ANAEMIA
     Route: 058
     Dates: start: 20060407, end: 20060506
  4. CISPLATIN [Suspect]
     Indication: CERVIX CARCINOMA
     Route: 065
     Dates: start: 20060328
  5. NOVALGIN [Concomitant]
     Route: 048
  6. BLOOD CELLS, RED [Concomitant]
     Route: 042

REACTIONS (4)
  - CEREBRAL INFARCTION [None]
  - CERVIX CARCINOMA [None]
  - ISCHAEMIC CEREBRAL INFARCTION [None]
  - MALIGNANT NEOPLASM PROGRESSION [None]
